FAERS Safety Report 12832228 (Version 2)
Quarter: 2016Q4

REPORT INFORMATION
  Report Type: Spontaneous
  Country: US (occurrence: US)
  Receive Date: 20161010
  Receipt Date: 20161207
  Transmission Date: 20170207
  Serious: No
  Sender: FDA-Public Use
  Company Number: US-BRISTOL-MYERS SQUIBB COMPANY-BMS-2016-083802

PATIENT
  Age: 62 Year
  Sex: Male

DRUGS (1)
  1. ABILIFY [Suspect]
     Active Substance: ARIPIPRAZOLE
     Indication: BIPOLAR DISORDER
     Dosage: 10 MG, QD
     Route: 065
     Dates: start: 2016

REACTIONS (5)
  - Insomnia [Recovered/Resolved]
  - Hallucination [Recovered/Resolved]
  - Tongue movement disturbance [Recovered/Resolved]
  - Memory impairment [Not Recovered/Not Resolved]
  - Trismus [Recovered/Resolved]
